FAERS Safety Report 5718951-4 (Version None)
Quarter: 2008Q2

REPORT INFORMATION
  Report Type: 
  Country: None (occurrence: None)
  Receive Date: 20080425
  Receipt Date: 20080425
  Transmission Date: 20081010
  Serious: Yes (Hospitalization, Other)
  Sender: FDA-Public Use
  Company Number: US-ABBOTT-08P-163-0447815-00

PATIENT
  Sex: Female
  Weight: 45.4 kg

DRUGS (3)
  1. HUMIRA [Suspect]
     Indication: CROHN'S DISEASE
     Route: 058
     Dates: start: 20070201, end: 20070301
  2. INFLIXIMAB [Concomitant]
     Indication: CROHN'S DISEASE
     Dates: start: 20080301, end: 20080301
  3. INFLIXIMAB [Concomitant]

REACTIONS (11)
  - ABDOMINAL DISTENSION [None]
  - ABDOMINAL PAIN [None]
  - BODY TEMPERATURE INCREASED [None]
  - CHILLS [None]
  - CROHN'S DISEASE [None]
  - DYSURIA [None]
  - HAEMOGLOBIN DECREASED [None]
  - HYPOVENTILATION [None]
  - INTESTINAL PERFORATION [None]
  - RECTAL HAEMORRHAGE [None]
  - WEIGHT DECREASED [None]
